FAERS Safety Report 4519031-6 (Version None)
Quarter: 2004Q4

REPORT INFORMATION
  Report Type: 
  Country: None (occurrence: None)
  Receive Date: 20041201
  Receipt Date: 20041122
  Transmission Date: 20050328
  Serious: Yes (Death)
  Sender: FDA-Public Use
  Company Number: 2004GB02813

PATIENT
  Age: 80 Year
  Sex: Female
  Weight: 73 kg

DRUGS (8)
  1. CRESTOR [Suspect]
     Indication: BLOOD CHOLESTEROL INCREASED
     Dosage: 10 MG DAILY PO
     Route: 048
     Dates: start: 20040920
  2. CRESTOR [Suspect]
     Indication: MYOCARDIAL ISCHAEMIA
     Dosage: 10 MG DAILY PO
     Route: 048
     Dates: start: 20040920
  3. ASPIRIN [Concomitant]
  4. BENDROFLUAZIDE [Concomitant]
  5. ADIZEM-XL [Concomitant]
  6. NICORANDIL [Concomitant]
  7. GTN [Concomitant]
  8. TRIMETHOPRIM [Concomitant]

REACTIONS (2)
  - CIRCULATORY COLLAPSE [None]
  - SUDDEN DEATH [None]
